FAERS Safety Report 17123925 (Version 1)
Quarter: 2019Q4

REPORT INFORMATION
  Report Type: Report from Study
  Country: US (occurrence: US)
  Receive Date: 20191206
  Receipt Date: 20191206
  Transmission Date: 20200122
  Serious: No
  Sender: FDA-Public Use
  Company Number: NVSC2019US061140

PATIENT
  Sex: Male

DRUGS (1)
  1. OMNITROPE [Suspect]
     Active Substance: SOMATROPIN
     Indication: HYPOPITUITARISM
     Dosage: 0.12 ML, QD
     Route: 058
     Dates: start: 20191127, end: 20191203

REACTIONS (3)
  - Acne [Unknown]
  - Pruritus [Unknown]
  - Incorrect dose administered [Unknown]
